FAERS Safety Report 9942125 (Version 1)
Quarter: 2014Q1

REPORT INFORMATION
  Report Type: Report from Study
  Country: US (occurrence: US)
  Receive Date: 20140303
  Receipt Date: 20140303
  Transmission Date: 20141002
  Serious: No
  Sender: FDA-Public Use
  Company Number: US-ABBVIE-13P-163-1043924-00

PATIENT
  Age: 66 Year
  Sex: Female

DRUGS (12)
  1. HUMIRA [Suspect]
     Indication: RHEUMATOID ARTHRITIS
     Dates: start: 20121112
  2. METHOTREXATE [Concomitant]
     Indication: RHEUMATOID ARTHRITIS
     Dosage: 2.5MG/0.8ML, WEEKLY
  3. SIMVASTATIN [Concomitant]
     Indication: PRODUCT USED FOR UNKNOWN INDICATION
  4. METFORMIN ER [Concomitant]
     Indication: DIABETES MELLITUS
  5. ACIPHEX [Concomitant]
     Indication: GASTROOESOPHAGEAL REFLUX DISEASE
     Dosage: AM AND PM
  6. VASOPRIN [Concomitant]
     Indication: CARDIAC DISORDER
  7. FISH OIL [Concomitant]
     Indication: PRODUCT USED FOR UNKNOWN INDICATION
  8. CALTRATE [Concomitant]
     Indication: PRODUCT USED FOR UNKNOWN INDICATION
  9. DIOVAN-HCTZ [Concomitant]
     Indication: CARDIAC DISORDER
     Dosage: 160/12.5MG DAILY
  10. FOLIC ACID [Concomitant]
     Indication: PROPHYLAXIS
  11. VIT D [Concomitant]
     Indication: NUTRITIONAL SUPPLEMENTATION
  12. LEVOTHYROXINE [Concomitant]
     Indication: THYROID DISORDER

REACTIONS (3)
  - Injection site pain [Not Recovered/Not Resolved]
  - Device malfunction [Not Recovered/Not Resolved]
  - Wrong technique in drug usage process [Not Recovered/Not Resolved]
